FAERS Safety Report 8867017 (Version 1)
Quarter: 2012Q4

REPORT INFORMATION
  Report Type: 
  Country: US (occurrence: US)
  Receive Date: 20121025
  Receipt Date: 20121025
  Transmission Date: 20130627
  Serious: No
  Sender: FDA-Public Use
  Company Number: US-AMGEN-USASP2012014195

PATIENT
  Sex: Female

DRUGS (7)
  1. ENBREL [Suspect]
     Indication: PRODUCT USED FOR UNKNOWN INDICATION
     Dosage: 50 mg, qwk
     Route: 058
  2. FOLIC ACID [Concomitant]
  3. SULINDAC [Concomitant]
     Dosage: 150 mg, UNK
  4. ALEVE [Concomitant]
  5. SPIRIVA HANDIHALER [Concomitant]
  6. METHOTREXATE [Concomitant]
     Dosage: 2.5 mg, UNK
  7. TRIAMTEREEN/HYDROCHLOOTTHIAZIDE [Concomitant]

REACTIONS (1)
  - Sinusitis [Unknown]
